FAERS Safety Report 6941623-5 (Version None)
Quarter: 2010Q3

REPORT INFORMATION
  Report Type: 
  Country: None (occurrence: None)
  Receive Date: 20100825
  Receipt Date: 20100813
  Transmission Date: 20110219
  Serious: Yes (Other)
  Sender: FDA-Public Use
  Company Number: JP-MERCK-1008USA03277

PATIENT
  Sex: Male

DRUGS (1)
  1. TRUSOPT [Suspect]
     Route: 047

REACTIONS (1)
  - DEAFNESS [None]
